FAERS Safety Report 12132768 (Version 4)
Quarter: 2016Q2

REPORT INFORMATION
  Report Type: Spontaneous
  Country: US (occurrence: US)
  Receive Date: 20160301
  Receipt Date: 20160614
  Transmission Date: 20160815
  Serious: Yes (Other)
  Sender: FDA-Public Use
  Company Number: US-ACTELION PHARMACEUTICALS US, INC.-A-US2016-131747

PATIENT
  Age: 35 Year
  Sex: Female

DRUGS (6)
  1. VELETRI [Suspect]
     Active Substance: EPOPROSTENOL
     Dosage: 22 NG/KG, PER MIN
     Route: 042
  2. VELETRI [Suspect]
     Active Substance: EPOPROSTENOL
     Indication: PULMONARY ARTERIAL HYPERTENSION
     Dosage: 18 NG/KG, PER MIN
     Route: 042
  3. SILDENAFIL. [Concomitant]
     Active Substance: SILDENAFIL
  4. VELETRI [Suspect]
     Active Substance: EPOPROSTENOL
     Dosage: UNK
     Route: 042
     Dates: start: 20150909
  5. TRACLEER [Suspect]
     Active Substance: BOSENTAN
     Indication: PULMONARY ARTERIAL HYPERTENSION
     Dosage: 125 MG, BID
     Route: 048
     Dates: start: 20150904
  6. AMLODIPINE [Concomitant]
     Active Substance: AMLODIPINE BESYLATE

REACTIONS (13)
  - Coagulation time prolonged [Unknown]
  - Productive cough [Unknown]
  - Sinusitis [Unknown]
  - Chest pain [Unknown]
  - Catheter site erythema [Unknown]
  - Platelet transfusion [Unknown]
  - Catheter site pruritus [Unknown]
  - Catheter management [Unknown]
  - Platelet count decreased [Unknown]
  - Burning sensation [Unknown]
  - Catheter site pain [Unknown]
  - Catheter site haemorrhage [Unknown]
  - Catheter placement [Unknown]

NARRATIVE: CASE EVENT DATE: 201604
